FAERS Safety Report 21566946 (Version 4)
Quarter: 2022Q4

REPORT INFORMATION
  Report Type: Spontaneous
  Country: BR (occurrence: BR)
  Receive Date: 20221108
  Receipt Date: 20221117
  Transmission Date: 20230113
  Serious: Yes (Death)
  Sender: FDA-Public Use
  Company Number: BR-ABBVIE-4188457

PATIENT
  Age: 44 Year
  Sex: Male

DRUGS (1)
  1. UPADACITINIB [Suspect]
     Active Substance: UPADACITINIB
     Indication: Dermatitis atopic
     Dosage: STRENGTH-15 MG, ONSET DATE-2022
     Route: 048

REACTIONS (4)
  - Staphylococcal skin infection [Fatal]
  - Sepsis [Fatal]
  - Off label use [Unknown]
  - Infection [Fatal]

NARRATIVE: CASE EVENT DATE: 20220101
